FAERS Safety Report 6694910-2 (Version None)
Quarter: 2010Q2

REPORT INFORMATION
  Report Type: 
  Country: None (occurrence: None)
  Receive Date: 20100420
  Receipt Date: 20100413
  Transmission Date: 20101027
  Serious: Yes (Hospitalization)
  Sender: FDA-Public Use
  Company Number: 2010AL002173

PATIENT
  Age: 20 Month
  Sex: Female
  Weight: 11 kg

DRUGS (2)
  1. ACETAMINOPHEN AND CODEINE PHOSPHATE [Suspect]
     Indication: SKIN LESION
     Dosage: 120 MG;QD
  2. KETOPROFEN [Concomitant]

REACTIONS (13)
  - ACUTE HEPATIC FAILURE [None]
  - ASCITES [None]
  - ASTERIXIS [None]
  - BLOOD PH INCREASED [None]
  - COMA [None]
  - ENCEPHALOPATHY [None]
  - HAEMATEMESIS [None]
  - HEPATOMEGALY [None]
  - INTERNATIONAL NORMALISED RATIO INCREASED [None]
  - PLATELET COUNT DECREASED [None]
  - PORTAL HYPERTENSION [None]
  - RESPIRATORY FAILURE [None]
  - SKIN HAEMORRHAGE [None]
